FAERS Safety Report 23880867 (Version 4)
Quarter: 2024Q2

REPORT INFORMATION
  Report Type: Spontaneous
  Country: SA (occurrence: SA)
  Receive Date: 20240521
  Receipt Date: 20240618
  Transmission Date: 20240715
  Serious: Yes (Other)
  Sender: FDA-Public Use
  Company Number: SA-002147023-NVSC2024SA104153

PATIENT
  Age: 0 Year
  Sex: Male
  Weight: 3.6 kg

DRUGS (4)
  1. ONASEMNOGENE ABEPARVOVEC [Suspect]
     Active Substance: ONASEMNOGENE ABEPARVOVEC
     Indication: Spinal muscular atrophy
     Dosage: 1 DOSAGE FORM, ONCE/SINGLE (ADMINISTRATED AS ONE TIME, SINGLE IV INFUSION)
     Route: 042
     Dates: start: 20240319, end: 20240319
  2. PREDO [Concomitant]
     Indication: Prophylaxis
     Dosage: 1.2 ML, QD
     Route: 065
     Dates: start: 20240318
  3. PREDO [Concomitant]
     Dosage: 0.6 ML, (TAPERED FROM 0.8 ML TO 0.6 ML)
     Route: 065
  4. PREDO [Concomitant]
     Dosage: 0.5 ML, QD
     Route: 065

REACTIONS (1)
  - Gamma-glutamyltransferase abnormal [Recovered/Resolved]

NARRATIVE: CASE EVENT DATE: 20240515
